FAERS Safety Report 15833449 (Version 1)
Quarter: 2019Q1

REPORT INFORMATION
  Report Type: Spontaneous
  Country: FR (occurrence: FR)
  Receive Date: 20190116
  Receipt Date: 20190116
  Transmission Date: 20190417
  Serious: Yes (Hospitalization)
  Sender: FDA-Public Use
  Company Number: FR-ALSI-201900016

PATIENT
  Age: 30 Year
  Sex: Female

DRUGS (1)
  1. NITROUS OXIDE. [Suspect]
     Active Substance: NITROUS OXIDE
     Indication: SUBSTANCE ABUSE
     Route: 045

REACTIONS (2)
  - Psychomotor hyperactivity [Recovered/Resolved]
  - Substance abuse [Unknown]
